FAERS Safety Report 24148530 (Version 2)
Quarter: 2024Q4

REPORT INFORMATION
  Report Type: Spontaneous
  Country: US (occurrence: US)
  Receive Date: 20240729
  Receipt Date: 20241119
  Transmission Date: 20250114
  Serious: Yes (Death, Hospitalization, Other)
  Sender: GLAXOSMITHKLINE
  Company Number: US-GLAXOSMITHKLINE-US2024093522

PATIENT

DRUGS (1)
  1. BENLYSTA [Suspect]
     Active Substance: BELIMUMAB
     Indication: Systemic lupus erythematosus
     Dosage: UNK (MD WANTED PT TO CHANGE TO 200 MG,)
     Dates: start: 202301, end: 202403

REACTIONS (2)
  - Death [Fatal]
  - Surgery [Unknown]

NARRATIVE: CASE EVENT DATE: 20230801
